FAERS Safety Report 23766835 (Version 1)
Quarter: 2024Q2

REPORT INFORMATION
  Report Type: Spontaneous
  Country: IT (occurrence: IT)
  Receive Date: 20240422
  Receipt Date: 20240422
  Transmission Date: 20240716
  Serious: Yes (Other)
  Sender: FDA-Public Use
  Company Number: None

PATIENT
  Age: 46 Year
  Sex: Female

DRUGS (2)
  1. EPIRUBICIN [Suspect]
     Active Substance: EPIRUBICIN
     Indication: Product used for unknown indication
     Dosage: 2ND CYCLE (01/26/24) 3RD (02/16/24) AND 4TH CYCLE (03/08/24): LOT GX6585, SC. 31.10.24??EPIRUBICI...
     Route: 042
     Dates: start: 20240226, end: 20240308
  2. CYCLOPHOSPHAMIDE [Suspect]
     Active Substance: CYCLOPHOSPHAMIDE
     Indication: Product used for unknown indication
     Dosage: 1ST CYCLE (26/01/24): 2K289F?2ND CYCLE (16/02/24) AND 3RD CYCLE (08/03/24): 3B295D??ENDOXAN BAXTER
     Route: 042
     Dates: start: 20231226, end: 20240308

REACTIONS (3)
  - Thrombocytopenia [Recovering/Resolving]
  - Nausea [Recovered/Resolved]
  - Vomiting [Recovered/Resolved]

NARRATIVE: CASE EVENT DATE: 20240126
